FAERS Safety Report 17942457 (Version 2)
Quarter: 2020Q3

REPORT INFORMATION
  Report Type: Spontaneous
  Country: US (occurrence: US)
  Receive Date: 20200625
  Receipt Date: 20200707
  Transmission Date: 20201103
  Serious: Yes (Death, Hospitalization, Other)
  Sender: FDA-Public Use
  Company Number: US-HBP-2020US020751

PATIENT
  Sex: Male

DRUGS (1)
  1. VALCHLOR [Suspect]
     Active Substance: MECHLORETHAMINE
     Indication: CUTANEOUS T-CELL LYMPHOMA
     Dosage: UNK, AS DIRECTED
     Route: 061
     Dates: end: 20200606

REACTIONS (5)
  - Sepsis [Fatal]
  - Dialysis [Not Recovered/Not Resolved]
  - Lymphoma [Fatal]
  - Renal failure [Not Recovered/Not Resolved]
  - Immunosuppression [Fatal]
